FAERS Safety Report 8540467-0 (Version None)
Quarter: 2012Q3

REPORT INFORMATION
  Report Type: 
  Country: None (occurrence: None)
  Receive Date: 20120713
  Receipt Date: 20120703
  Transmission Date: 20120928
  Serious: Yes (Death)
  Sender: FDA-Public Use
  Company Number: JP-DEXPHARM-20120772

PATIENT
  Age: 54 Year
  Sex: Male

DRUGS (1)
  1. OMEPRAZOLE [Suspect]
     Indication: GASTRIC HAEMORRHAGE
     Dates: start: 20110312

REACTIONS (14)
  - DRUG RASH WITH EOSINOPHILIA AND SYSTEMIC SYMPTOMS [None]
  - ASPARTATE AMINOTRANSFERASE INCREASED [None]
  - SWELLING FACE [None]
  - LYMPHADENOPATHY [None]
  - ALANINE AMINOTRANSFERASE INCREASED [None]
  - HYPOGAMMAGLOBULINAEMIA [None]
  - MULTI-ORGAN FAILURE [None]
  - RENAL IMPAIRMENT [None]
  - STEVENS-JOHNSON SYNDROME [None]
  - TOXIC EPIDERMAL NECROLYSIS [None]
  - PANCREATIC ENZYMES INCREASED [None]
  - ERYTHEMA [None]
  - HYPERBILIRUBINAEMIA [None]
  - PYREXIA [None]
